FAERS Safety Report 10409316 (Version 1)
Quarter: 2014Q2

REPORT INFORMATION
  Report Type: Spontaneous
  Country: US (occurrence: None)
  Receive Date: 20140604
  Receipt Date: 20140604
  Transmission Date: 20141212
  Serious: Yes (Other)
  Sender: FDA-Public Use
  Company Number: 163-POMAL-14032075

PATIENT
  Age: 78 Year
  Sex: Male
  Weight: 81.65 kg

DRUGS (10)
  1. POMALYST (POMALIDOMIDE) (4 MILLIGRAM, CAPSULES) [Suspect]
     Indication: PLASMA CELL MYELOMA
     Dosage: 21 IN 28 D
     Route: 048
     Dates: start: 201402
  2. ZOMETA(ZOLEDRONIC ACID)(UNKNOWN) [Concomitant]
  3. PROCRIT(ERYTHROPOIETIN)(UNKNOWN) [Concomitant]
  4. DECADRON(DEXAMETHASONE)(UNKNOWN) [Concomitant]
  5. KYPROLIS(CARFILZOMIB)(UNKNOWN) [Concomitant]
  6. DIOVAN(VALSARTAN)(UNKNOWN) [Concomitant]
  7. FLOMAX(TAMSULOSIN)(UNKNOWN) [Concomitant]
  8. NPH(ALCOMYXINE)(UNKNOWN) [Concomitant]
  9. REGULAR INSULIN(INSULIN PORCINE)(UNKNOWN) [Concomitant]
  10. ZOFRAN(ONDANSETRON HYDROCHLORIDE)(UNKNOWN) [Concomitant]

REACTIONS (2)
  - Neutropenia [None]
  - White blood cell count decreased [None]
